FAERS Safety Report 14600242 (Version 2)
Quarter: 2018Q1

REPORT INFORMATION
  Report Type: Spontaneous
  Country: GR (occurrence: GR)
  Receive Date: 20180305
  Receipt Date: 20180320
  Transmission Date: 20180509
  Serious: Yes (Hospitalization, Other)
  Sender: FDA-Public Use
  Company Number: GR-DSJP-DSJ-2018-108466AA

PATIENT

DRUGS (5)
  1. OLMESARTAN AND AMLODIPINE [Suspect]
     Active Substance: AMLODIPINE BESYLATE\OLMESARTAN MEDOXOMIL
     Indication: PRODUCT USED FOR UNKNOWN INDICATION
     Dosage: 10 MG AMLODIPINE + 20 MG OLMESARTAN, BID
     Route: 065
  2. CARVEDILOL. [Suspect]
     Active Substance: CARVEDILOL
     Indication: CARDIAC FAILURE
     Dosage: 6.25 MG, BID
     Route: 065
  3. IRBESARTAN. [Suspect]
     Active Substance: IRBESARTAN
     Indication: CARDIAC FAILURE
     Dosage: 300 MG, QD
     Route: 065
  4. AMILORIDE W/FUROSEMIDE [Suspect]
     Active Substance: AMILORIDE\FUROSEMIDE
     Indication: CARDIAC FAILURE
     Dosage: 2 DF, QD ((40 MG+5 MG) /DAY)
     Route: 065
  5. DICLOFENAC [Suspect]
     Active Substance: DICLOFENAC
     Indication: CARDIAC FAILURE
     Dosage: UNK
     Route: 065

REACTIONS (5)
  - Hyperkalaemia [Recovered/Resolved]
  - Muscular weakness [Recovered/Resolved]
  - Hyponatraemia [Recovered/Resolved]
  - Orthostatic hypotension [Recovered/Resolved]
  - Renal impairment [Recovered/Resolved]
